FAERS Safety Report 8587675 (Version 3)
Quarter: 2013Q1

REPORT INFORMATION
  Report Type: Spontaneous
  Country: MX (occurrence: MX)
  Receive Date: 20120531
  Receipt Date: 20130124
  Transmission Date: 20140127
  Serious: Yes (Other)
  Sender: FDA-Public Use
  Company Number: PHHY2012MX045877

PATIENT
  Age: 85 Year
  Sex: Female

DRUGS (2)
  1. CO-DIOVAN [Suspect]
     Indication: HYPERTENSION
     Dosage: 2 DF (160 MG OF VALS/25 MG OF HYDRO), PER DAY
     Dates: start: 20071211
  2. DIOVAN [Suspect]
     Indication: BLOOD GLUCOSE ABNORMAL
     Dosage: 2 DF, PER DAY

REACTIONS (5)
  - Oesophageal rupture [Recovered/Resolved]
  - Aphagia [Recovered/Resolved]
  - Stress [Recovered/Resolved]
  - Anxiety [Recovered/Resolved]
  - Blood pressure inadequately controlled [Recovered/Resolved]
